FAERS Safety Report 18684045 (Version 1)
Quarter: 2020Q4

REPORT INFORMATION
  Report Type: Report from Study
  Country: US (occurrence: US)
  Receive Date: 20201230
  Receipt Date: 20201230
  Transmission Date: 20210114
  Serious: Yes (Death, Hospitalization)
  Sender: FDA-Public Use
  Company Number: US-EISAI MEDICAL RESEARCH-EC-2020-085979

PATIENT
  Age: 72 Year
  Sex: Female
  Weight: 102 kg

DRUGS (13)
  1. PROBIOTIC + ACIDOPHILUS [Concomitant]
  2. CEFDINIR. [Concomitant]
     Active Substance: CEFDINIR
  3. HYDROCODONE-ACETAMINOP [Concomitant]
  4. KEYTRUDA [Concomitant]
     Active Substance: PEMBROLIZUMAB
  5. LENVIMA [Suspect]
     Active Substance: LENVATINIB
     Indication: ENDOMETRIAL CANCER
     Route: 048
     Dates: start: 20200929
  6. AMLODIPINE BESYLATE. [Concomitant]
     Active Substance: AMLODIPINE BESYLATE
  7. TYLENOL [Concomitant]
     Active Substance: ACETAMINOPHEN
  8. FLOVENT HFA [Concomitant]
     Active Substance: FLUTICASONE PROPIONATE
  9. ONDANSETRON HCL [Concomitant]
     Active Substance: ONDANSETRON HYDROCHLORIDE
  10. LATANOPROST. [Concomitant]
     Active Substance: LATANOPROST
  11. MULTIVITAMIN DAILY [Concomitant]
  12. FLUOXETINE HCL [Concomitant]
     Active Substance: FLUOXETINE HYDROCHLORIDE
  13. GABAPENTIN. [Concomitant]
     Active Substance: GABAPENTIN

REACTIONS (1)
  - Gastrointestinal haemorrhage [Fatal]

NARRATIVE: CASE EVENT DATE: 20201121
